FAERS Safety Report 8980212 (Version 1)
Quarter: 2012Q4

REPORT INFORMATION
  Report Type: 
  Country: CA (occurrence: CA)
  Receive Date: 20121221
  Receipt Date: 20121221
  Transmission Date: 20130627
  Serious: Yes (Hospitalization, Other)
  Sender: FDA-Public Use
  Company Number: CA-AMGEN-CANSP2012075957

PATIENT
  Age: 74 Year
  Sex: Female
  Weight: 63.95 kg

DRUGS (1)
  1. PROLIA [Suspect]
     Indication: OSTEOPOROSIS
     Dosage: 60 mg, q6mo
     Route: 058
     Dates: start: 20120518

REACTIONS (2)
  - Cholangiocarcinoma [Not Recovered/Not Resolved]
  - Septic shock [Unknown]
